FAERS Safety Report 12654039 (Version 1)
Quarter: 2016Q3

REPORT INFORMATION
  Report Type: Spontaneous
  Country: US (occurrence: US)
  Receive Date: 20160816
  Receipt Date: 20160816
  Transmission Date: 20161109
  Serious: Yes (Other)
  Sender: FDA-Public Use
  Company Number: US-HORIZON-PRE-0246-2016

PATIENT
  Age: 64 Year
  Sex: Female

DRUGS (6)
  1. SOLIFENACIN [Concomitant]
     Active Substance: SOLIFENACIN
  2. MONTELUKAST [Concomitant]
     Active Substance: MONTELUKAST SODIUM
  3. PREDNISONE. [Suspect]
     Active Substance: PREDNISONE
     Indication: EOSINOPHILIC CYSTITIS
     Dosage: 40, 30, 20 AND 10 MG WITH DOSE REDUCED EVERY 5 DAYS
  4. HYDROXYZINE [Concomitant]
     Active Substance: HYDROXYZINE\HYDROXYZINE HYDROCHLORIDE
     Route: 048
  5. LORATADINE. [Concomitant]
     Active Substance: LORATADINE
  6. METHYLPREDNISOLONE. [Concomitant]
     Active Substance: METHYLPREDNISOLONE

REACTIONS (5)
  - Tremor [Unknown]
  - Weight increased [Unknown]
  - Depressed mood [Unknown]
  - Hip fracture [Unknown]
  - Visual impairment [Unknown]
